FAERS Safety Report 24019539 (Version 2)
Quarter: 2024Q3

REPORT INFORMATION
  Report Type: Spontaneous
  Country: US (occurrence: US)
  Receive Date: 20240627
  Receipt Date: 20240716
  Transmission Date: 20241016
  Serious: No
  Sender: BAYER
  Company Number: US-BAYER-2024A089464

PATIENT
  Age: 32 Year
  Sex: Female
  Weight: 57.596 kg

DRUGS (5)
  1. MIRENA [Suspect]
     Active Substance: LEVONORGESTREL
     Indication: Intrauterine contraception
     Dosage: 20?G/DAY
     Route: 015
     Dates: start: 20230505
  2. BUSPIRONE HCL [Concomitant]
     Active Substance: BUSPIRONE HYDROCHLORIDE
     Dosage: UNK UNK, BID
     Route: 048
     Dates: start: 20230607
  3. ESTARYLLA [Concomitant]
     Active Substance: ETHINYL ESTRADIOL\NORGESTIMATE
     Dosage: UNK UNK, QD
     Route: 048
     Dates: start: 20230607
  4. FOLIC ACID [Concomitant]
     Active Substance: FOLIC ACID
     Dosage: UNK
     Dates: start: 20230607
  5. IRON [Concomitant]
     Active Substance: IRON
     Dosage: UNK
     Dates: start: 20230607

REACTIONS (1)
  - Procedural pain [None]
